FAERS Safety Report 6065650-8 (Version None)
Quarter: 2009Q1

REPORT INFORMATION
  Report Type: 
  Country: None (occurrence: None)
  Receive Date: 20090204
  Receipt Date: 20090128
  Transmission Date: 20090719
  Serious: Yes (Death)
  Sender: FDA-Public Use
  Company Number: JP-BAXTER-2009BH001654

PATIENT
  Age: 56 Year
  Sex: Male

DRUGS (4)
  1. FEIBA VH IMMUNO [Suspect]
     Indication: PROPHYLAXIS
     Route: 065
     Dates: start: 19870101
  2. FEIBA VH IMMUNO [Suspect]
     Route: 042
     Dates: start: 20080311, end: 20080311
  3. FEIBA VH IMMUNO [Suspect]
     Route: 042
     Dates: start: 20080312, end: 20080312
  4. AMINOLEBAN EN [Concomitant]
     Indication: HEPATIC FAILURE
     Route: 048
     Dates: start: 20080101, end: 20080315

REACTIONS (1)
  - HEPATIC FAILURE [None]
